FAERS Safety Report 23820036 (Version 3)
Quarter: 2024Q2

REPORT INFORMATION
  Report Type: Report from Study
  Country: GB (occurrence: GB)
  Receive Date: 20240506
  Receipt Date: 20240607
  Transmission Date: 20240716
  Serious: Yes (Hospitalization)
  Sender: FDA-Public Use
  Company Number: GB-002147023-NVSC2024GB091763

PATIENT
  Sex: Male

DRUGS (1)
  1. AIMOVIG [Suspect]
     Active Substance: ERENUMAB-AOOE
     Indication: Migraine
     Dosage: 140 MG, Q4W (EVERY 4 WEEKS)
     Route: 058
     Dates: start: 2023

REACTIONS (5)
  - Spinal fracture [Unknown]
  - Foot fracture [Unknown]
  - Oedema peripheral [Unknown]
  - Psychotic disorder [Unknown]
  - Infection [Unknown]
